FAERS Safety Report 10294516 (Version 2)
Quarter: 2014Q3

REPORT INFORMATION
  Report Type: Spontaneous
  Country: CA (occurrence: CA)
  Receive Date: 20140710
  Receipt Date: 20140729
  Transmission Date: 20150326
  Serious: Yes (Hospitalization)
  Sender: FDA-Public Use
  Company Number: CA-SHIRE-CA201403395

PATIENT
  Age: 18 Year
  Sex: Male

DRUGS (5)
  1. RISPERIDONE. [Suspect]
     Active Substance: RISPERIDONE
     Dosage: 1 MG, 2X/DAY:BID
     Route: 048
  2. AMPHETAMINE SALTS [Suspect]
     Active Substance: AMPHETAMINE ASPARTATE\AMPHETAMINE SULFATE\DEXTROAMPHETAMINE SACCHARATE\DEXTROAMPHETAMINE SULFATE
     Indication: PRODUCT USED FOR UNKNOWN INDICATION
     Dosage: 30 MG, 1X/DAY:QD
     Route: 048
  3. RISPERIDONE. [Suspect]
     Active Substance: RISPERIDONE
     Indication: PRODUCT USED FOR UNKNOWN INDICATION
     Dosage: 0.25 MG, 1X/DAY:QD
     Route: 048
  4. RISPERIDONE. [Suspect]
     Active Substance: RISPERIDONE
     Dosage: 0.25 MG, 1X/DAY:QD (EVERY MORNING)
     Route: 048
  5. RISPERIDONE. [Suspect]
     Active Substance: RISPERIDONE
     Dosage: 0.5 MG, 1X/DAY:QD (EVERY NIGHT AT SLEEPING TIME)
     Route: 048

REACTIONS (15)
  - Illogical thinking [Unknown]
  - Distractibility [Unknown]
  - Abnormal behaviour [Recovered/Resolved]
  - Impulsive behaviour [Not Recovered/Not Resolved]
  - Incoherent [Recovered/Resolved]
  - Persecutory delusion [Recovered/Resolved]
  - Communication disorder [Unknown]
  - Anxiety [Not Recovered/Not Resolved]
  - Restlessness [Unknown]
  - Inappropriate schedule of drug administration [Not Recovered/Not Resolved]
  - Agitation [Not Recovered/Not Resolved]
  - Psychotic disorder [Recovered/Resolved]
  - Paranoia [Recovered/Resolved]
  - Substance-induced psychotic disorder [Recovered/Resolved]
  - Disturbance in attention [Unknown]
